FAERS Safety Report 8350749-3 (Version None)
Quarter: 2012Q2

REPORT INFORMATION
  Report Type: 
  Country: None (occurrence: None)
  Receive Date: 20120510
  Receipt Date: 20120504
  Transmission Date: 20120825
  Serious: Yes (Other)
  Sender: FDA-Public Use
  Company Number: SN-VIIV HEALTHCARE LIMITED-A0976891A

PATIENT
  Age: 26 Year
  Sex: Female

DRUGS (5)
  1. LAMIVUDINE (EPIVIR HBV) [Suspect]
     Indication: HIV INFECTION
     Route: 065
     Dates: start: 20061130
  2. NEVIRAPINE [Suspect]
     Indication: HIV INFECTION
     Dates: start: 20061130
  3. EFAVIRENZ [Concomitant]
  4. ZIDOVUDINE [Concomitant]
  5. ZERIT [Suspect]
     Indication: HIV INFECTION
     Dates: start: 20061130

REACTIONS (8)
  - IMMUNE RECONSTITUTION SYNDROME [None]
  - HYPERAESTHESIA [None]
  - LEPROSY [None]
  - TUBERCULOID LEPROSY [None]
  - SKIN LESION [None]
  - PYREXIA [None]
  - NERVOUS SYSTEM DISORDER [None]
  - SENSORIMOTOR DISORDER [None]
